FAERS Safety Report 17594343 (Version 4)
Quarter: 2020Q3

REPORT INFORMATION
  Report Type: Report from Study
  Country: TR (occurrence: TR)
  Receive Date: 20200327
  Receipt Date: 20200820
  Transmission Date: 20201102
  Serious: Yes (Death, Other)
  Sender: FDA-Public Use
  Company Number: TR-SA-2020SA077471

PATIENT

DRUGS (13)
  1. FLUCONAZOLE. [Concomitant]
     Active Substance: FLUCONAZOLE
     Indication: PROPHYLAXIS
     Dosage: 5 MG/KG, QD
  2. ALLOPURINOL. [Concomitant]
     Active Substance: ALLOPURINOL
     Dosage: 10 MG/KG, QD
  3. CIPROFLOXACIN. [Concomitant]
     Active Substance: CIPROFLOXACIN
     Dosage: 15 MG/KG, QD
  4. URSODEOXYCHOLIC ACID [Concomitant]
     Active Substance: URSODIOL
     Indication: PROPHYLAXIS
  5. TREOSULFAN [Concomitant]
     Active Substance: TREOSULFAN
     Dosage: 14 G/M2/DAY FOR 3 DAYS
  6. ALEMTUZUMAB [Suspect]
     Active Substance: ALEMTUZUMAB
     Indication: COMBINED IMMUNODEFICIENCY
     Dosage: 0.2 MG/KG/DOSE, TOTAL 1 MG/KG
     Route: 065
     Dates: start: 20200220, end: 20200224
  7. ALEMTUZUMAB [Suspect]
     Active Substance: ALEMTUZUMAB
     Indication: STEM CELL TRANSPLANT
  8. FLUCONAZOLE. [Concomitant]
     Active Substance: FLUCONAZOLE
     Dosage: 5 MG/KG, QD
  9. TRIMETHOPRIM SULFAMETHOXAZOLE [Concomitant]
     Active Substance: SULFAMETHOXAZOLE\TRIMETHOPRIM
     Dosage: 7 MG/KG, QD
  10. FLUDARABINE [Concomitant]
     Active Substance: FLUDARABINE PHOSPHATE
     Dosage: 30 MG/M2/DAY (RECEIVED FOR 5 DAYS)
     Dates: start: 20200221
  11. ACYCLOVIR [ACICLOVIR] [Concomitant]
     Active Substance: ACYCLOVIR
     Dosage: 600 MG/M2/DOSE
  12. URSODEOXYCHOLIC ACID [Concomitant]
     Active Substance: URSODIOL
     Indication: INFECTION
     Dosage: 12 MG/KG, QD
  13. MYCOSTATIN [Concomitant]
     Active Substance: NYSTATIN
     Route: 048

REACTIONS (9)
  - Hyperaemia [Unknown]
  - Febrile neutropenia [Unknown]
  - Pneumonia [Fatal]
  - Off label use [Unknown]
  - Cytopenia [Unknown]
  - Rash [Recovered/Resolved]
  - Acute respiratory distress syndrome [Fatal]
  - Neutropenia [Recovering/Resolving]
  - Pancytopenia [Unknown]

NARRATIVE: CASE EVENT DATE: 20200220
